FAERS Safety Report 12202708 (Version 5)
Quarter: 2017Q1

REPORT INFORMATION
  Report Type: Report from Study
  Country: None (occurrence: HU)
  Receive Date: 20160322
  Receipt Date: 20170213
  Transmission Date: 20170428
  Serious: Yes (Hospitalization)
  Sender: FDA-Public Use
  Company Number: HU-ABBVIE-16P-076-1588917-00

PATIENT
  Age: 70 Year
  Sex: Female
  Weight: 48 kg

DRUGS (5)
  1. SERTRALINE (STIMULOTON) [Concomitant]
     Indication: PANIC ATTACK
     Dosage: IN THE MORNING
     Route: 048
  2. ACETYLSALICYLIC ACID (ASTRIX) [Concomitant]
     Indication: PRODUCT USED FOR UNKNOWN INDICATION
     Dosage: IN THE MORNING
     Route: 048
  3. XANAX [Concomitant]
     Active Substance: ALPRAZOLAM
     Indication: PANIC ATTACK
     Route: 048
  4. DUODOPA [Suspect]
     Active Substance: CARBIDOPA\LEVODOPA
     Indication: PARKINSON^S DISEASE
     Dosage: MD: 8.5ML; CONT DOSE: 2.6ML/H; ED1.5ML
     Route: 050
     Dates: start: 20141031
  5. MIANSERIN (MIAGEN) [Concomitant]
     Indication: DEPRESSION
     Dosage: IN THE EVENING
     Route: 048

REACTIONS (10)
  - Arthralgia [Unknown]
  - Decreased appetite [Unknown]
  - Bone disorder [Unknown]
  - Decubitus ulcer [Unknown]
  - Spinal decompression [Unknown]
  - Weight decreased [Unknown]
  - Device dislocation [Unknown]
  - Gait disturbance [Recovered/Resolved]
  - Stoma site haemorrhage [Recovered/Resolved]
  - Arthropathy [Unknown]

NARRATIVE: CASE EVENT DATE: 201601
